FAERS Safety Report 11405201 (Version 3)
Quarter: 2016Q4

REPORT INFORMATION
  Report Type: Report from Study
  Country: US (occurrence: US)
  Receive Date: 20150821
  Receipt Date: 20161216
  Transmission Date: 20170206
  Serious: Yes (Hospitalization)
  Sender: FDA-Public Use
  Company Number: US-AMGEN-USACT2015084085

PATIENT
  Age: 61 Year
  Sex: Female

DRUGS (4)
  1. REVLIMID [Concomitant]
     Active Substance: LENALIDOMIDE
     Dosage: UNK
  2. CARFILZOMIB [Suspect]
     Active Substance: CARFILZOMIB
     Indication: PLASMA CELL MYELOMA
     Dosage: 20 MG/M2, PER CHEMO REGIM
     Route: 042
     Dates: start: 20150806, end: 20150807
  3. COMPAZINE [Concomitant]
     Active Substance: PROCHLORPERAZINE MALEATE
     Indication: NAUSEA
     Dosage: UNK
  4. FILANESIB [Suspect]
     Active Substance: FILANESIB
     Indication: PLASMA CELL MYELOMA
     Dosage: 1.5 MG/M2, PER CHEMO REGIM
     Route: 042
     Dates: start: 20150806, end: 20150807

REACTIONS (2)
  - Nervous system disorder [Unknown]
  - Lung infection [Unknown]

NARRATIVE: CASE EVENT DATE: 20150813
